FAERS Safety Report 9015190 (Version 1)
Quarter: 2013Q1

REPORT INFORMATION
  Report Type: Spontaneous
  Country: US (occurrence: None)
  Receive Date: 20130103
  Receipt Date: 20130103
  Transmission Date: 20140127
  Serious: Yes (Hospitalization)
  Sender: FDA-Public Use
  Company Number: NSR_00759_2012

PATIENT
  Age: 78 Year
  Sex: Female

DRUGS (3)
  1. METOCLOPRAMIDE [Suspect]
     Indication: DIABETIC GASTROPARESIS
     Dosage: (DF)
  2. LORAZEPAM [Concomitant]
  3. FLUOXETINE (UNKNOWN) [Concomitant]

REACTIONS (7)
  - Chest pain [None]
  - Headache [None]
  - Respiratory alkalosis [None]
  - Tardive dyskinesia [None]
  - Respiratory dyskinesia [None]
  - Anxiety disorder [None]
  - Drug withdrawal syndrome [None]
